FAERS Safety Report 23419311 (Version 1)
Quarter: 2024Q1

REPORT INFORMATION
  Report Type: Spontaneous
  Country: PT (occurrence: PT)
  Receive Date: 20240118
  Receipt Date: 20240118
  Transmission Date: 20240410
  Serious: Yes (Other)
  Sender: FDA-Public Use
  Company Number: None

PATIENT
  Age: 64 Year
  Sex: Male

DRUGS (5)
  1. ENBREL [Suspect]
     Active Substance: ETANERCEPT
     Indication: Ankylosing spondylitis
     Dosage: 50 MG (1 PEN EVERY 10 DAYS)
     Route: 058
     Dates: start: 20130220, end: 20230918
  2. ENBREL [Suspect]
     Active Substance: ETANERCEPT
     Dosage: 50 MG (1 PEN EVERY 10 DAYS)
     Route: 058
     Dates: start: 20130220, end: 20230918
  3. ENBREL [Suspect]
     Active Substance: ETANERCEPT
     Dosage: 50 MG (1 PEN EVERY 10 DAYS)
     Route: 058
     Dates: start: 20130220, end: 20230918
  4. METHOTREXATE SODIUM [Concomitant]
     Active Substance: METHOTREXATE SODIUM
     Indication: Product used for unknown indication
     Dosage: UNK
     Route: 065
  5. LEUCOVORIN [Concomitant]
     Active Substance: LEUCOVORIN\LEUCOVORIN CALCIUM
     Indication: Product used for unknown indication
     Dosage: UNK
     Route: 065

REACTIONS (2)
  - Off label use [Unknown]
  - Uveitis [Recovered/Resolved]

NARRATIVE: CASE EVENT DATE: 20130220
